FAERS Safety Report 16892483 (Version 1)
Quarter: 2019Q4

REPORT INFORMATION
  Report Type: Spontaneous
  Country: CA (occurrence: CA)
  Receive Date: 20191007
  Receipt Date: 20191007
  Transmission Date: 20200122
  Serious: Yes (Death)
  Sender: FDA-Public Use
  Company Number: CA-TEVA-2019-CA-1117231

PATIENT
  Age: 51 Year
  Sex: Female
  Weight: 86 kg

DRUGS (3)
  1. BUPROPION. [Suspect]
     Active Substance: BUPROPION
     Indication: SMOKING CESSATION THERAPY
     Dosage: 300 MILLIGRAM DAILY;
     Route: 048
  2. BUPROPION. [Suspect]
     Active Substance: BUPROPION
     Dosage: 300 MILLIGRAM DAILY;
     Route: 048
  3. VENLAFAXINE HYDROCHLORIDE. [Concomitant]
     Active Substance: VENLAFAXINE HYDROCHLORIDE

REACTIONS (2)
  - Seizure [Fatal]
  - Brain injury [Fatal]
